FAERS Safety Report 24760389 (Version 1)
Quarter: 2024Q4

REPORT INFORMATION
  Report Type: Spontaneous
  Country: US (occurrence: US)
  Receive Date: 20241220
  Receipt Date: 20241220
  Transmission Date: 20250115
  Serious: No
  Sender: FRESENIUS KABI
  Company Number: US-FreseniusKabi-FK202419088

PATIENT
  Age: 28 Year
  Sex: Female
  Weight: 117.5 kg

DRUGS (2)
  1. XYLOCAINE WITH EPINEPHRINE [Suspect]
     Active Substance: EPINEPHRINE BITARTRATE\LIDOCAINE HYDROCHLORIDE
     Indication: Anaesthesia
     Dosage: FORM OF ADMINISTRATION: INJECTION INTO INTERIOR CHEST WALL?TYPICALLY 10ML IS EFFECTIVE AMOUNT OF ANE
     Dates: start: 20241216
  2. XYLOCAINE WITH EPINEPHRINE [Suspect]
     Active Substance: EPINEPHRINE BITARTRATE\LIDOCAINE HYDROCHLORIDE
     Dosage: FORM OF ADMINISTRATION: INJECTION INTO INTERIOR CHEST WALL?TYPICALLY 10ML IS EFFECTIVE AMOUNT OF ANE
     Dates: start: 20241216

REACTIONS (1)
  - Therapeutic product effect decreased [Unknown]

NARRATIVE: CASE EVENT DATE: 20241216
